FAERS Safety Report 9894580 (Version 1)
Quarter: 2014Q1

REPORT INFORMATION
  Report Type: Spontaneous
  Country: FR (occurrence: FR)
  Receive Date: 20140213
  Receipt Date: 20140213
  Transmission Date: 20141002
  Serious: Yes (Other)
  Sender: FDA-Public Use
  Company Number: FR-TEVA-462515ISR

PATIENT
  Sex: Male
  Weight: 10 kg

DRUGS (2)
  1. MONTELUKAST TEVA 4MG [Suspect]
     Indication: EAR INFECTION
     Route: 048
  2. AERIUS [Concomitant]

REACTIONS (4)
  - Bronchiolitis [Not Recovered/Not Resolved]
  - Cough [Not Recovered/Not Resolved]
  - Off label use [Not Recovered/Not Resolved]
  - Asthma [Not Recovered/Not Resolved]
